FAERS Safety Report 9160378 (Version 1)
Quarter: 2013Q1

REPORT INFORMATION
  Report Type: Spontaneous
  Country: IT (occurrence: None)
  Receive Date: 20130219
  Receipt Date: 20130219
  Transmission Date: 20140127
  Serious: Yes (Hospitalization)
  Sender: FDA-Public Use
  Company Number: VAL_01402_2013

PATIENT
  Sex: Female

DRUGS (7)
  1. METOPROLOL (METOPROLOL-METOPROLOL TARTRATE) [Suspect]
     Route: 048
  2. CORDARONE [Concomitant]
  3. COUMADIN/00014802/(UNKNOWN) [Concomitant]
  4. CARDIOASPIRIN [Concomitant]
  5. LASIX/00032601 [Concomitant]
  6. ZYLORIC [Concomitant]
  7. ALDACTONE/00006201 [Concomitant]

REACTIONS (1)
  - Syncope [None]
